FAERS Safety Report 5709137-8 (Version None)
Quarter: 2008Q2

REPORT INFORMATION
  Report Type: 
  Country: None (occurrence: None)
  Receive Date: 20080418
  Receipt Date: 20080407
  Transmission Date: 20081010
  Serious: No
  Sender: FDA-Public Use
  Company Number: DE-BAXTER-2008BH002095

PATIENT
  Age: 70 Year
  Sex: Female
  Weight: 87 kg

DRUGS (6)
  1. GAMMAGARD LIQUID [Suspect]
     Indication: MYASTHENIC SYNDROME
     Route: 042
     Dates: start: 20080128, end: 20080128
  2. MESTINON [Concomitant]
  3. 3,4-DIAMINOPYRIDINE [Concomitant]
  4. TORSEMIDE [Concomitant]
  5. L-THYROXIN ^HENNING BERLIN^ [Concomitant]
  6. RIOPAN [Concomitant]

REACTIONS (2)
  - BLOOD PRESSURE INCREASED [None]
  - HYPERSENSITIVITY [None]
